FAERS Safety Report 8017331-9 (Version None)
Quarter: 2012Q1

REPORT INFORMATION
  Report Type: 
  Country: None (occurrence: None)
  Receive Date: 20120102
  Receipt Date: 20111010
  Transmission Date: 20120608
  Serious: Yes (Hospitalization)
  Sender: FDA-Public Use
  Company Number: US-ROCHE-1001373

PATIENT
  Sex: Female
  Weight: 74.2 kg

DRUGS (8)
  1. AMLODIPINE [Concomitant]
     Dosage: AS DIRECTED FOR  30 DAYS
  2. HYDROCHLOROTHIAZIDE [Concomitant]
     Dosage: 30 DAYS
     Route: 048
  3. CALTRATE + D [Concomitant]
     Dosage: 600 MG/400 IU
     Route: 049
  4. IPILIMUMAB [Suspect]
     Indication: METASTATIC MALIGNANT MELANOMA
     Dosage: LAST DOSE:09 SEP 2011
  5. ATIVAN [Concomitant]
     Dosage: TAKE 1 PIL AM WHEN NEEDED.
     Route: 048
  6. LISINOPRIL [Concomitant]
     Dosage: 30 DAYS
     Route: 048
  7. FOSAMAX [Concomitant]
     Route: 048
  8. AVASTIN [Suspect]
     Indication: METASTATIC MALIGNANT MELANOMA
     Dosage: DOSE,ROUTE AND FREQUENCY:UNKNOWN,LAST DOSE:09 SEP 2011
     Dates: start: 20110728

REACTIONS (3)
  - ADRENAL INSUFFICIENCY [None]
  - HYPOXIA [None]
  - PLEURAL EFFUSION [None]
